FAERS Safety Report 5227409-0 (Version None)
Quarter: 2007Q1

REPORT INFORMATION
  Report Type: 
  Country: None (occurrence: None)
  Receive Date: 20070202
  Receipt Date: 20070119
  Transmission Date: 20070707
  Serious: No
  Sender: FDA-Public Use
  Company Number: US-ELI_LILLY_AND_COMPANY-US200701003852

PATIENT
  Age: 77 Year
  Sex: Female

DRUGS (4)
  1. CYMBALTA [Suspect]
     Indication: NEURALGIA
     Dosage: 30 MG, DAILY (1/D)
  2. CYMBALTA [Suspect]
     Dosage: 60 MG, DAILY (1/D)
     Dates: start: 20061003
  3. DILTIAZEM [Concomitant]
     Indication: BLOOD PRESSURE
     Dosage: 180 MG, 2/D
  4. NEURONTIN [Concomitant]
     Indication: NEURALGIA
     Dosage: 300 MG, 2/D

REACTIONS (4)
  - ALOPECIA [None]
  - CHROMATURIA [None]
  - CONSTIPATION [None]
  - FEELING ABNORMAL [None]
